FAERS Safety Report 4524552-6 (Version None)
Quarter: 2004Q4

REPORT INFORMATION
  Report Type: 
  Country: None (occurrence: None)
  Receive Date: 20041117
  Receipt Date: 20040406
  Transmission Date: 20050328
  Serious: Yes (Other)
  Sender: FDA-Public Use
  Company Number: US-JNJFOC-20040302111

PATIENT
  Age: 62 Year
  Sex: Male
  Weight: 97.5234 kg

DRUGS (5)
  1. LEVAQUIN [Suspect]
     Indication: PROSTATITIS
     Dosage: 500 MG, 1 IN 1 DAY, ORAL
     Route: 048
     Dates: start: 20040130, end: 20040310
  2. ENALAPRIL (ENALAPRIL [Concomitant]
  3. FLOMAX (CAPLET) TAMSULOSIN HYDROCHLORIDE [Concomitant]
  4. PROSCAR [Concomitant]
  5. LASIX [Concomitant]

REACTIONS (1)
  - TENDON RUPTURE [None]
